FAERS Safety Report 5057324-7 (Version None)
Quarter: 2006Q3

REPORT INFORMATION
  Report Type: 
  Country: None (occurrence: None)
  Receive Date: 20060721
  Receipt Date: 20050809
  Transmission Date: 20061208
  Serious: No
  Sender: FDA-Public Use
  Company Number: US-GLAXOSMITHKLINE-A0569535A

PATIENT
  Age: 44 Year
  Sex: Male
  Weight: 72.3 kg

DRUGS (3)
  1. AVANDIA [Suspect]
     Route: 048
     Dates: start: 20050201
  2. LISINOPRIL [Concomitant]
     Indication: HYPERTENSION
     Dosage: 20MG PER DAY
     Route: 048
     Dates: start: 20030101
  3. LIPITOR [Concomitant]
     Dosage: 40MG PER DAY
     Route: 048
     Dates: start: 20030101

REACTIONS (2)
  - PRURITUS [None]
  - RASH [None]
